FAERS Safety Report 9427876 (Version 2)
Quarter: 2013Q4

REPORT INFORMATION
  Report Type: Spontaneous
  Country: US (occurrence: US)
  Receive Date: 20130730
  Receipt Date: 20131223
  Transmission Date: 20140711
  Serious: No
  Sender: FDA-Public Use
  Company Number: US-PFIZER INC-2013220134

PATIENT
  Age: 63 Year
  Sex: Female

DRUGS (1)
  1. XALKORI [Suspect]
     Indication: LUNG NEOPLASM MALIGNANT
     Dosage: 250 MG, (ONE CAPSULE) 2X/DAY
     Route: 048
     Dates: start: 20130918

REACTIONS (3)
  - Diarrhoea [Unknown]
  - Vitreous floaters [Unknown]
  - Photopsia [Unknown]
